FAERS Safety Report 19755766 (Version 1)
Quarter: 2021Q3

REPORT INFORMATION
  Report Type: Spontaneous
  Country: GB (occurrence: GB)
  Receive Date: 20210827
  Receipt Date: 20210827
  Transmission Date: 20211014
  Serious: Yes (Other)
  Sender: FDA-Public Use
  Company Number: GB-PFIZER INC-2021422284

PATIENT
  Age: 65 Year
  Sex: Male
  Weight: 80.5 kg

DRUGS (1)
  1. DOCETAXEL. [Suspect]
     Active Substance: DOCETAXEL
     Indication: CHEMOTHERAPY
     Dosage: 148 MG
     Route: 042
     Dates: start: 20210415, end: 20210415

REACTIONS (4)
  - Hyperhidrosis [Unknown]
  - Presyncope [Unknown]
  - Chest pain [Unknown]
  - Flushing [Recovered/Resolved]

NARRATIVE: CASE EVENT DATE: 20210415
